FAERS Safety Report 17367927 (Version 1)
Quarter: 2020Q1

REPORT INFORMATION
  Report Type: Spontaneous
  Country: US (occurrence: US)
  Receive Date: 20200117
  Receipt Date: 20200117
  Transmission Date: 20200409
  Serious: Yes (Hospitalization)
  Sender: FDA-Public Use
  Company Number: None

PATIENT
  Age: 45 Year
  Sex: Female
  Weight: 69.9 kg

DRUGS (2)
  1. CISPLATIN. [Suspect]
     Active Substance: CISPLATIN
     Dates: end: 20191217
  2. 5-FLUOROURACIL (5-FU) [Suspect]
     Active Substance: FLUOROURACIL
     Dates: end: 20191221

REACTIONS (14)
  - Swelling [None]
  - Weight decreased [None]
  - Pyrexia [None]
  - Dysuria [None]
  - Aspartate aminotransferase increased [None]
  - Anaemia [None]
  - Blood alkaline phosphatase increased [None]
  - Leukocytosis [None]
  - Sialoadenitis [None]
  - Pain [None]
  - Alanine aminotransferase increased [None]
  - Thrombocytopenia [None]
  - Parotitis [None]
  - Tachycardia [None]

NARRATIVE: CASE EVENT DATE: 20191226
